FAERS Safety Report 18995224 (Version 2)
Quarter: 2021Q2

REPORT INFORMATION
  Report Type: Spontaneous
  Country: US (occurrence: US)
  Receive Date: 20210311
  Receipt Date: 20210423
  Transmission Date: 20210717
  Serious: No
  Sender: FDA-Public Use
  Company Number: US-ROCHE-2785614

PATIENT
  Sex: Female
  Weight: 63.56 kg

DRUGS (5)
  1. COMPAZINE [Concomitant]
     Active Substance: PROCHLORPERAZINE MALEATE
     Route: 048
     Dates: start: 20201222
  2. KADCYLA [Suspect]
     Active Substance: ADO-TRASTUZUMAB EMTANSINE
     Indication: NEOPLASM MALIGNANT
     Route: 042
     Dates: start: 20201229
  3. NARCO [Concomitant]
     Route: 048
     Dates: start: 20201222
  4. ZOFRAN [Concomitant]
     Active Substance: ONDANSETRON HYDROCHLORIDE
     Route: 048
     Dates: start: 20201222
  5. DILAUDID [Concomitant]
     Active Substance: HYDROMORPHONE HYDROCHLORIDE
     Route: 048
     Dates: start: 20201222

REACTIONS (3)
  - Migraine [Unknown]
  - Bone pain [Unknown]
  - Myalgia [Unknown]
